FAERS Safety Report 11543678 (Version 1)
Quarter: 2015Q3

REPORT INFORMATION
  Report Type: Spontaneous
  Country: FR (occurrence: FR)
  Receive Date: 20150924
  Receipt Date: 20150924
  Transmission Date: 20151125
  Serious: Yes (Hospitalization)
  Sender: FDA-Public Use
  Company Number: FR-ROCHE-1637729

PATIENT
  Age: 67 Year
  Sex: Female

DRUGS (19)
  1. EMEND [Suspect]
     Active Substance: APREPITANT
     Indication: PROPHYLAXIS OF NAUSEA AND VOMITING
     Route: 048
  2. CEFTRIAXONE. [Concomitant]
     Active Substance: CEFTRIAXONE
     Route: 065
     Dates: start: 20150909, end: 20150911
  3. LEVOFLOXACINE [Concomitant]
     Active Substance: LEVOFLOXACIN
     Route: 065
     Dates: start: 20150911
  4. PRIMPERAN [Suspect]
     Active Substance: METOCLOPRAMIDE HYDROCHLORIDE
     Indication: PROPHYLAXIS OF NAUSEA AND VOMITING
     Route: 048
  5. PILOCARPINE. [Concomitant]
     Active Substance: PILOCARPINE
     Route: 065
  6. DACARBAZINE. [Suspect]
     Active Substance: DACARBAZINE
     Indication: HODGKIN^S DISEASE
     Route: 042
     Dates: start: 20150508
  7. POLARAMINE [Suspect]
     Active Substance: DEXCHLORPHENIRAMINE MALEATE
     Indication: PREMEDICATION
     Route: 042
     Dates: start: 20150508
  8. AMOXICILLIN/CLAVULANIC ACID [Concomitant]
     Active Substance: AMOXICILLIN\CLAVULANIC ACID
     Indication: COUGH
  9. SPIRAMYCINE [Concomitant]
     Active Substance: SPIRAMYCIN
     Route: 065
     Dates: start: 20150909, end: 20150911
  10. BLEOMYCINE BELLON [Suspect]
     Active Substance: BLEOMYCIN SULFATE
     Indication: HODGKIN^S DISEASE
     Route: 042
     Dates: start: 20150508
  11. METHYLPREDNISOLONE. [Suspect]
     Active Substance: METHYLPREDNISOLONE
     Indication: PREMEDICATION
     Route: 042
     Dates: start: 20150508
  12. PARACETAMOL [Suspect]
     Active Substance: ACETAMINOPHEN
     Indication: PREMEDICATION
     Route: 065
     Dates: start: 20150508
  13. ZARZIO [Concomitant]
     Active Substance: FILGRASTIM
     Indication: AGRANULOCYTOSIS
     Dosage: 30 MILLION UNITS DAILY DURING 5 DAYS
     Route: 065
     Dates: start: 20150610
  14. MABTHERA [Suspect]
     Active Substance: RITUXIMAB
     Indication: HODGKIN^S DISEASE
     Route: 042
     Dates: start: 20150508
  15. ADRIBLASTINE [Suspect]
     Active Substance: DOXORUBICIN
     Indication: HODGKIN^S DISEASE
     Route: 042
     Dates: start: 20150508
  16. ONDANSETRON [Suspect]
     Active Substance: ONDANSETRON
     Indication: PROPHYLAXIS OF NAUSEA AND VOMITING
     Route: 042
  17. CLARITHROMYCINE [Concomitant]
     Active Substance: CLARITHROMYCIN
     Indication: COUGH
  18. VELBE [Suspect]
     Active Substance: VINBLASTINE SULFATE
     Indication: HODGKIN^S DISEASE
     Route: 042
     Dates: start: 20150508
  19. VALACICLOVIR [Concomitant]
     Active Substance: VALACYCLOVIR HYDROCHLORIDE
     Route: 065

REACTIONS (3)
  - Disease progression [Recovering/Resolving]
  - Pyrexia [Recovering/Resolving]
  - Interstitial lung disease [Recovering/Resolving]
